FAERS Safety Report 7820423-8 (Version None)
Quarter: 2011Q4

REPORT INFORMATION
  Report Type: 
  Country: None (occurrence: None)
  Receive Date: 20111018
  Receipt Date: 20111003
  Transmission Date: 20120403
  Serious: Yes (Other)
  Sender: FDA-Public Use
  Company Number: JP-ROCHE-799274

PATIENT
  Sex: Male

DRUGS (13)
  1. JANUVIA [Concomitant]
     Indication: DIABETES MELLITUS
     Dosage: DOSE REPORTED AS 50. INFUSION RATE DECREASED
     Route: 048
  2. ENALAPRIL MALEATE [Concomitant]
     Indication: HYPERTENSION
     Dosage: DOSE REPORTED AS 5.
     Route: 048
     Dates: start: 20110801
  3. METFFORMIN HYDROCHLORIDE [Concomitant]
     Indication: DIABETES MELLITUS
     Dosage: DOSE REPORTED AS 250
     Route: 048
  4. ETIZOLAM [Concomitant]
     Indication: INSOMNIA
     Dosage: INFUSION RATE DECREASED. DOSE REPORTED AS 0.5
     Route: 048
     Dates: start: 20110801
  5. AMLODIPINE [Concomitant]
     Indication: HYPERURICAEMIA
     Dosage: DOSE REPORTED AS 2.5. INFUSION RATE DECREASED
     Route: 048
  6. LEVOLEUCOVORIN CALCIUM [Concomitant]
     Indication: COLON CANCER METASTATIC
     Dosage: DOSE REPORTED AS 330
     Route: 041
     Dates: start: 20110726, end: 20110808
  7. FLUOROURACIL [Concomitant]
     Indication: COLON CANCER METASTATIC
     Dosage: DOSE: 3900
     Route: 041
     Dates: start: 20110726, end: 20110801
  8. AVASTIN [Suspect]
     Indication: COLON CANCER METASTATIC
     Route: 041
     Dates: start: 20110726, end: 20110808
  9. AMARYL [Concomitant]
     Indication: DIABETES MELLITUS
     Dosage: DOSE REPORTED AS 1
     Route: 048
  10. ALLOPURINOL [Concomitant]
     Indication: HYPERURICAEMIA
     Dosage: DOSE REPORTED AS 100. INFUSION RATE DECREASED
     Route: 048
  11. PERINDOPRIL ERBUMINE [Concomitant]
     Dosage: INFUSION RATE DECREASED. DOSE REPORTED AS 4
     Route: 048
     Dates: start: 20110801
  12. FLUOROURACIL [Concomitant]
     Dosage: DOSE: 660
     Route: 040
     Dates: start: 20110726, end: 20110808
  13. MAGMITT [Concomitant]
     Indication: CONSTIPATION
     Dosage: DOSE REPORTED AS 1
     Route: 048

REACTIONS (1)
  - CEREBRAL INFARCTION [None]
